FAERS Safety Report 9365081 (Version 2)
Quarter: 2013Q2

REPORT INFORMATION
  Report Type: Report from Study
  Country: US (occurrence: US)
  Receive Date: 20130624
  Receipt Date: 20130627
  Transmission Date: 20140414
  Serious: Yes (Hospitalization)
  Sender: FDA-Public Use
  Company Number: US-JNJFOC-20130611267

PATIENT
  Age: 66 Year
  Sex: Male
  Weight: 129.28 kg

DRUGS (3)
  1. USTEKINUMAB [Suspect]
     Indication: PSORIASIS
     Route: 058
     Dates: start: 200912
  2. ACITRETIN [Suspect]
     Indication: PRODUCT USED FOR UNKNOWN INDICATION
  3. TACLONEX [Suspect]
     Indication: PRODUCT USED FOR UNKNOWN INDICATION

REACTIONS (1)
  - Renal failure [Recovered/Resolved with Sequelae]
